FAERS Safety Report 6787882-3 (Version None)
Quarter: 2010Q2

REPORT INFORMATION
  Report Type: 
  Country: None (occurrence: None)
  Receive Date: 20100623
  Receipt Date: 20070918
  Transmission Date: 20101027
  Serious: No
  Sender: FDA-Public Use
  Company Number: US-PFIZER INC-2007079626

PATIENT
  Age: 16 Year
  Sex: Female
  Weight: 73 kg

DRUGS (2)
  1. DEPO-PROVERA SUSPENSION/INJ [Suspect]
     Indication: CONTRACEPTION
     Dosage: LAST INJECTION. MONTHLY
     Route: 030
     Dates: start: 20070101, end: 20070101
  2. DEPO-SUBQ PROVERA 104 [Suspect]
     Indication: CONTRACEPTION
     Dosage: LAST INJECTION
     Route: 058
     Dates: start: 20070101, end: 20070101

REACTIONS (3)
  - AMENORRHOEA [None]
  - DRUG ADMINISTRATION ERROR [None]
  - WEIGHT INCREASED [None]
